FAERS Safety Report 6870887-1 (Version None)
Quarter: 2010Q3

REPORT INFORMATION
  Report Type: 
  Country: None (occurrence: None)
  Receive Date: 20100723
  Receipt Date: 20100712
  Transmission Date: 20110219
  Serious: Yes (Other)
  Sender: FDA-Public Use
  Company Number: PHHY2010FI45530

PATIENT
  Age: 37 Year
  Sex: Male

DRUGS (4)
  1. LEPONEX [Suspect]
     Indication: SCHIZOPHRENIA, PARANOID TYPE
     Dosage: 100 MG, QD
  2. BISOPROLOL [Concomitant]
     Indication: HEART RATE IRREGULAR
     Dosage: 5 MG ONCE A DAY
  3. SIMVASTATIN [Concomitant]
     Indication: HYPERLIPIDAEMIA
     Dosage: 20 MG ONCE A DAY
  4. NEXIUM [Concomitant]
     Indication: DYSPEPSIA
     Dosage: 20 MG ONCE A DAY

REACTIONS (2)
  - BUNDLE BRANCH BLOCK LEFT [None]
  - PALPITATIONS [None]
